FAERS Safety Report 7599109-3 (Version None)
Quarter: 2011Q3

REPORT INFORMATION
  Report Type: 
  Country: None (occurrence: None)
  Receive Date: 20110711
  Receipt Date: 20091122
  Transmission Date: 20111222
  Serious: Yes (Death, Other)
  Sender: FDA-Public Use
  Company Number: US-BAYER-200940128NA

PATIENT
  Age: 68 Year
  Sex: Male
  Weight: 108.84 kg

DRUGS (20)
  1. HEPARIN [Concomitant]
     Dosage: 3500
     Route: 042
  2. INOCOR [Concomitant]
  3. RED BLOOD CELLS [Concomitant]
     Dosage: 2 U, UNK
     Route: 042
     Dates: start: 20050916
  4. ALBUMIN (HUMAN) [Concomitant]
     Route: 042
  5. ISOFLURANE [Concomitant]
     Route: 042
  6. LASIX [Concomitant]
     Route: 042
  7. CARDIOPLEGIA [Concomitant]
  8. TRASYLOL [Suspect]
     Indication: CORONARY ARTERY BYPASS
     Dosage: 10000KIU
     Route: 042
     Dates: start: 20050916, end: 20050916
  9. LIDOCAINE [Concomitant]
     Dosage: 100 MG, UNK
  10. INSULIN [Concomitant]
     Route: 042
  11. MANNITOL [Concomitant]
     Route: 042
  12. PROTAMINE SULFATE [Concomitant]
  13. FRESH FROZEN PLASMA [Concomitant]
     Dosage: 4 U, UNK
     Route: 042
     Dates: start: 20050916
  14. COUMADIN [Concomitant]
     Route: 048
  15. VANCOMYCIN [Concomitant]
     Dosage: 500 MG, UNK
     Route: 042
  16. FENTANYL [Concomitant]
  17. PROPOFOL [Concomitant]
  18. NITROGLYCERIN [Concomitant]
  19. PLATELETS [Concomitant]
     Dosage: 2 U, UNK
     Route: 042
     Dates: start: 20050916
  20. VERSED [Concomitant]
     Dosage: 5 MG, UNK
     Route: 042

REACTIONS (12)
  - RENAL FAILURE [None]
  - ANXIETY [None]
  - INJURY [None]
  - ANHEDONIA [None]
  - FEAR [None]
  - PAIN [None]
  - DEATH [None]
  - RENAL IMPAIRMENT [None]
  - STRESS [None]
  - UNEVALUABLE EVENT [None]
  - RENAL INJURY [None]
  - EMOTIONAL DISTRESS [None]
